FAERS Safety Report 10187500 (Version 1)
Quarter: 2014Q2

REPORT INFORMATION
  Report Type: Spontaneous
  Country: US (occurrence: US)
  Receive Date: 20140522
  Receipt Date: 20140522
  Transmission Date: 20141212
  Serious: No
  Sender: FDA-Public Use
  Company Number: US-SANOFI-AVENTIS-2013SA075344

PATIENT
  Sex: Female

DRUGS (1)
  1. LANTUS [Suspect]
     Dosage: DOSE:24 UNIT(S)
     Route: 058

REACTIONS (3)
  - Swelling face [Unknown]
  - Weight increased [Unknown]
  - Blood glucose increased [Unknown]
